FAERS Safety Report 9731195 (Version 1)
Quarter: 2013Q4

REPORT INFORMATION
  Report Type: Spontaneous
  Country: CA (occurrence: CA)
  Receive Date: 20131203
  Receipt Date: 20131203
  Transmission Date: 20140711
  Serious: Yes (Other)
  Sender: FDA-Public Use
  Company Number: CA-B.I. PHARMACEUTICALS,INC./RIDGEFIELD-2013-BI-39282CN

PATIENT
  Age: 79 Year
  Sex: Female
  Weight: 86 kg

DRUGS (9)
  1. PRADAXA [Suspect]
     Dosage: 300 MG
     Route: 048
  2. PRADAXA [Suspect]
     Dosage: 220 MG
     Route: 048
  3. ALLOPURINOL [Concomitant]
  4. ATORVASTATIN [Concomitant]
  5. CHLORDIAZEPOXIDE [Concomitant]
  6. DIPHENHYDRAMINE [Concomitant]
  7. PAROXETINE [Concomitant]
  8. VERAPAMIL HCL [Concomitant]
  9. VITAMIN D [Concomitant]

REACTIONS (1)
  - Blood creatinine increased [Not Recovered/Not Resolved]
